FAERS Safety Report 8453906 (Version 6)
Quarter: 2013Q2

REPORT INFORMATION
  Report Type: Spontaneous
  Country: US (occurrence: US)
  Receive Date: 20120312
  Receipt Date: 20130620
  Transmission Date: 20140414
  Serious: Yes (Hospitalization, Other)
  Sender: FDA-Public Use
  Company Number: US-MERCK-1203USA01085

PATIENT
  Sex: Female

DRUGS (12)
  1. FOSAMAX [Suspect]
     Indication: OSTEOPENIA
     Dosage: UNK
     Route: 048
     Dates: start: 200208
  2. FOSAMAX [Suspect]
     Indication: OSTEOPOROSIS
     Dosage: 70 MG, QW
     Route: 048
     Dates: start: 200803, end: 201104
  3. FOSAMAX PLUS D [Suspect]
     Indication: OSTEOPENIA
     Dosage: 70 MG QW
     Route: 048
     Dates: start: 200703, end: 200802
  4. FOSAMAX PLUS D [Suspect]
     Indication: OSTEOPOROSIS PROPHYLAXIS
     Dosage: 70MG/2800IU, QW
     Route: 048
  5. CENTRUM SILVER [Concomitant]
     Dosage: UNK
     Dates: start: 1992
  6. ALENDRONATE SODIUM [Suspect]
     Dosage: 70 MG, QW
     Route: 048
     Dates: start: 20080321
  7. OMEPRAZOLE [Concomitant]
     Indication: DYSPEPSIA
     Dosage: UNK
     Dates: start: 20060316, end: 20110622
  8. BELLERGAL-S TABLETS [Concomitant]
  9. DYAZIDE [Concomitant]
  10. BENADRYL [Concomitant]
  11. DILTIAZEM CD [Concomitant]
     Indication: HYPERTENSION
  12. NAPROXEN [Concomitant]

REACTIONS (19)
  - Intramedullary rod insertion [Unknown]
  - Ankle fracture [Unknown]
  - Fracture displacement [Unknown]
  - Open reduction of fracture [Unknown]
  - Cellulitis [Recovered/Resolved]
  - Femur fracture [Unknown]
  - Femur fracture [Unknown]
  - Low turnover osteopathy [Unknown]
  - Glaucoma [Unknown]
  - Adverse event [Unknown]
  - Fall [Unknown]
  - Bladder prolapse [Unknown]
  - Bronchitis [Unknown]
  - Fall [Unknown]
  - Hypokalaemia [Unknown]
  - Bursitis [Unknown]
  - Contusion [Unknown]
  - Pain in extremity [Unknown]
  - Nausea [Unknown]
